FAERS Safety Report 6677320-3 (Version None)
Quarter: 2010Q2

REPORT INFORMATION
  Report Type: 
  Country: None (occurrence: None)
  Receive Date: 20100408
  Receipt Date: 20100408
  Transmission Date: 20101027
  Serious: No
  Sender: FDA-Public Use
  Company Number: None

PATIENT
  Age: 81 Year
  Sex: Female
  Weight: 62 kg

DRUGS (6)
  1. MORPHINE [Suspect]
     Indication: PAIN
     Dosage: 1-2 MG EVERY 2 ACCORDING TO NECESSITY IV
     Route: 042
     Dates: start: 20100207
  2. LIPITOR [Concomitant]
  3. PREVACID [Concomitant]
  4. CELEBREX [Concomitant]
  5. ASPIRIN [Concomitant]
  6. VITAMIN E [Concomitant]

REACTIONS (2)
  - ERYTHEMA [None]
  - SWELLING [None]
